FAERS Safety Report 5737605-1 (Version None)
Quarter: 2008Q2

REPORT INFORMATION
  Report Type: 
  Country: None (occurrence: None)
  Receive Date: 20080514
  Receipt Date: 20080508
  Transmission Date: 20081010
  Serious: Yes (Death)
  Sender: FDA-Public Use
  Company Number: US-GENENTECH-260767

PATIENT
  Age: 6 Year
  Sex: Female

DRUGS (1)
  1. AVASTIN [Suspect]
     Indication: GLIOBLASTOMA MULTIFORME

REACTIONS (3)
  - CEREBROVASCULAR ACCIDENT [None]
  - DYSPHAGIA [None]
  - HEMIPARESIS [None]
